FAERS Safety Report 20888532 (Version 1)
Quarter: 2022Q2

REPORT INFORMATION
  Report Type: Spontaneous
  Country: SE (occurrence: SE)
  Receive Date: 20220529
  Receipt Date: 20220529
  Transmission Date: 20220721
  Serious: Yes (Disabling)
  Sender: FDA-Public Use
  Company Number: None

PATIENT
  Age: 76 Year
  Sex: Male

DRUGS (1)
  1. GABAPENTIN [Suspect]
     Active Substance: GABAPENTIN
     Indication: Neuralgia
     Dosage: 300 MG, QD (300 MG 1X1)
     Route: 048
     Dates: start: 20220429, end: 20220501

REACTIONS (12)
  - Testicular pain [Recovering/Resolving]
  - Testicular swelling [Not Recovered/Not Resolved]
  - Renal pain [Recovering/Resolving]
  - Feeling cold [Recovered/Resolved]
  - Chills [Recovered/Resolved]
  - Mental impairment [Recovering/Resolving]
  - Tremor [Recovered/Resolved]
  - Dyspnoea [Recovering/Resolving]
  - Arthralgia [Recovering/Resolving]
  - Fatigue [Recovered/Resolved]
  - Back pain [Recovering/Resolving]
  - Abdominal pain [Recovering/Resolving]

NARRATIVE: CASE EVENT DATE: 20220429
